FAERS Safety Report 10183260 (Version 1)
Quarter: 2014Q2

REPORT INFORMATION
  Report Type: Spontaneous
  Country: FR (occurrence: FR)
  Receive Date: 20140520
  Receipt Date: 20140520
  Transmission Date: 20141212
  Serious: Yes (Other)
  Sender: FDA-Public Use
  Company Number: FR-PFIZER INC-2014132252

PATIENT
  Age: 77 Year
  Sex: Male
  Weight: 43.2 kg

DRUGS (6)
  1. ZOLOFT [Suspect]
     Indication: ANXIETY
     Dosage: 100 MG, 1X/DAY IN THE MORNING
  2. ZOLOFT [Suspect]
     Indication: BIPOLAR I DISORDER
  3. ABILIFY [Suspect]
     Indication: PROPHYLAXIS AGAINST PSYCHOMOTOR AGITATION
     Dosage: 15 MG, 1X/DAY IN THE MORNING
  4. ABILIFY [Suspect]
     Indication: POTENTIATING DRUG INTERACTION
  5. ATHYMIL [Suspect]
     Indication: INSOMNIA
     Dosage: 15 MG, DAILY IN THE EVENING
  6. ATHYMIL [Suspect]
     Dosage: 30 MG, DAILY IN THE EVENING

REACTIONS (6)
  - Rectal haemorrhage [Unknown]
  - Orthostatic hypotension [Unknown]
  - Tachycardia [Unknown]
  - Diarrhoea [Unknown]
  - Dehydration [Unknown]
  - Fall [Unknown]
